FAERS Safety Report 4665791-3 (Version None)
Quarter: 2005Q2

REPORT INFORMATION
  Report Type: 
  Country: None (occurrence: None)
  Receive Date: 20050519
  Receipt Date: 20050114
  Transmission Date: 20051028
  Serious: No
  Sender: FDA-Public Use
  Company Number: US-GLAXOSMITHKLINE-A0540787A

PATIENT
  Age: 61 Year
  Sex: Female

DRUGS (15)
  1. THORAZINE [Suspect]
     Dosage: 50MG PER DAY
     Route: 048
     Dates: start: 19660101
  2. FOSAMAX [Concomitant]
  3. PREMARIN [Concomitant]
  4. TEGRETOL [Concomitant]
  5. WELLBUTRIN [Concomitant]
  6. ZOLOFT [Concomitant]
  7. SYNTHROID [Concomitant]
  8. NEXIUM [Concomitant]
  9. PRILOSEC [Concomitant]
  10. LIPITOR [Concomitant]
  11. CELEBREX [Concomitant]
  12. VIOXX [Concomitant]
  13. SEROQUEL [Concomitant]
  14. ASPIRIN [Concomitant]
  15. VITAMINS [Concomitant]

REACTIONS (1)
  - CALCIUM DEFICIENCY [None]
